FAERS Safety Report 5670376-6 (Version None)
Quarter: 2008Q2

REPORT INFORMATION
  Report Type: 
  Country: None (occurrence: None)
  Receive Date: 20080305
  Receipt Date: 20070305
  Transmission Date: 20081010
  Serious: Yes (Hospitalization)
  Sender: FDA-Public Use
  Company Number: BDI-009204

PATIENT
  Age: 54 Year
  Sex: Female

DRUGS (5)
  1. ISOVUE-370 [Suspect]
     Indication: ABDOMINAL PAIN UPPER
     Dosage: 100ML ONCE INTRAVENOUS (NOT OTHERWISE SPECIFIED)
     Route: 042
     Dates: start: 20070302, end: 20070302
  2. ISOVUE-370 [Suspect]
     Indication: COMPUTERISED TOMOGRAM ABDOMEN
     Dosage: 100ML ONCE INTRAVENOUS (NOT OTHERWISE SPECIFIED)
     Route: 042
     Dates: start: 20070302, end: 20070302
  3. ISOVUE-370 [Suspect]
     Indication: NAUSEA
     Dosage: 100ML ONCE INTRAVENOUS (NOT OTHERWISE SPECIFIED)
     Route: 042
     Dates: start: 20070302, end: 20070302
  4. PREDNISONE 50MG TAB [Concomitant]
  5. BENADRYL [Concomitant]

REACTIONS (4)
  - CHEST DISCOMFORT [None]
  - CHEST PAIN [None]
  - HEADACHE [None]
  - PALPITATIONS [None]
